FAERS Safety Report 15285296 (Version 1)
Quarter: 2018Q3

REPORT INFORMATION
  Report Type: Spontaneous
  Country: ES (occurrence: ES)
  Receive Date: 20180816
  Receipt Date: 20180816
  Transmission Date: 20181010
  Serious: Yes (Life-Threatening, Other)
  Sender: FDA-Public Use
  Company Number: ES-PFIZER INC-2018328165

PATIENT
  Age: 53 Year
  Sex: Female
  Weight: 58 kg

DRUGS (2)
  1. BISOPROLOL [Concomitant]
     Active Substance: BISOPROLOL
     Dosage: UNK
  2. METHOTREXATE SODIUM. [Suspect]
     Active Substance: METHOTREXATE SODIUM
     Indication: POLYMYOSITIS
     Dosage: 20 MG, WEEKLY
     Route: 058
     Dates: start: 2013, end: 201807

REACTIONS (1)
  - Ventricular fibrillation [Recovered/Resolved]

NARRATIVE: CASE EVENT DATE: 201807
